FAERS Safety Report 4827790-8 (Version None)
Quarter: 2005Q4

REPORT INFORMATION
  Report Type: 
  Country: None (occurrence: None)
  Receive Date: 20051110
  Receipt Date: 20051102
  Transmission Date: 20060501
  Serious: Yes (Life-Threatening)
  Sender: FDA-Public Use
  Company Number: US-2005-023172

PATIENT
  Age: 65 Year
  Sex: Female
  Weight: 64 kg

DRUGS (14)
  1. MAGNEVIST [Suspect]
     Indication: ANGIOGRAM
     Dosage: 70 ML, 1 DOSE, INTRAVENOUS
     Route: 042
     Dates: start: 20051024, end: 20051024
  2. PRINIVIL [Concomitant]
  3. ALPRAZOLAM [Concomitant]
  4. AMITRIPTYLINE HCL [Concomitant]
  5. ACETAMINOPHEN [Concomitant]
  6. ASPIRIN [Concomitant]
  7. AZTREONAM (AZTREONAM) [Concomitant]
  8. DORZOLAMIDE (DORZOLAMIDE) [Concomitant]
  9. HYDROXYZINE [Concomitant]
  10. INSULIN [Concomitant]
  11. LINEZOLID (LINEZOLID) [Concomitant]
  12. LORATADINE [Concomitant]
  13. METRONIDAZOLE [Concomitant]
  14. PANTOPRAZOLE SODIUM [Concomitant]

REACTIONS (1)
  - RENAL FAILURE ACUTE [None]
